FAERS Safety Report 8786393 (Version 1)
Quarter: 2012Q4

REPORT INFORMATION
  Report Type: 
  Country: JP (occurrence: JP)
  Receive Date: 20120914
  Receipt Date: 20120914
  Transmission Date: 20130627
  Serious: Yes (Hospitalization, Disabling)
  Sender: FDA-Public Use
  Company Number: JP-MERCK-1205USA03954

PATIENT

DRUGS (11)
  1. GLACTIV [Suspect]
     Dosage: 50 mg, qd
     Route: 048
     Dates: start: 20110430, end: 20110817
  2. GLACTIV [Suspect]
     Dosage: 100 mg, qd
     Route: 048
     Dates: start: 20110805, end: 20110817
  3. ITOROL [Concomitant]
     Dates: end: 20110817
  4. INDERAL [Concomitant]
     Dates: end: 20110817
  5. MICARDIS [Concomitant]
     Dates: end: 20110817
  6. NORVASC [Concomitant]
     Dates: end: 20110817
  7. CIBENOL [Concomitant]
     Dates: end: 20110817
  8. PURSENNID (SENNOSIDES) [Concomitant]
     Dates: end: 20110817
  9. MYSLEE [Concomitant]
     Dates: end: 20110817
  10. SOLANAX [Concomitant]
     Dates: end: 20110817
  11. MERISLON [Concomitant]
     Dates: end: 20110817

REACTIONS (1)
  - Cerebral infarction [Unknown]
